FAERS Safety Report 6136899-0 (Version None)
Quarter: 2009Q1

REPORT INFORMATION
  Report Type: 
  Country: None (occurrence: None)
  Receive Date: 20090330
  Receipt Date: 20090323
  Transmission Date: 20090719
  Serious: Yes (Other)
  Sender: FDA-Public Use
  Company Number: JP-AVENTIS-200910727JP

PATIENT
  Age: 40 Year
  Sex: Male

DRUGS (4)
  1. LANTUS [Suspect]
     Dosage: DOSE: 2 UNITS
     Route: 058
     Dates: start: 20090214
  2. NOVORAPID [Concomitant]
  3. ORAL AGENT [Concomitant]
  4. KINEDAK [Concomitant]

REACTIONS (1)
  - HEPATIC FUNCTION ABNORMAL [None]
